FAERS Safety Report 5402883-5 (Version None)
Quarter: 2007Q3

REPORT INFORMATION
  Report Type: 
  Country: None (occurrence: None)
  Receive Date: 20070801
  Receipt Date: 20070717
  Transmission Date: 20080115
  Serious: Yes (Hospitalization)
  Sender: FDA-Public Use
  Company Number: FR-ROCHE-506717

PATIENT
  Age: 1 Hour
  Sex: Male
  Weight: 2.1 kg

DRUGS (5)
  1. INVIRASE [Suspect]
     Dates: start: 20070430, end: 20070526
  2. KALETRA [Suspect]
     Dates: start: 20040101, end: 20070526
  3. COMBIVIR [Suspect]
     Dosage: START AT LEAST IN 1998.
     Dates: start: 19980101, end: 20070430
  4. SPASFON [Concomitant]
  5. TB MEDICATION [Concomitant]
     Dosage: DRUG REPORTED AS TB9.

REACTIONS (2)
  - ABDOMINAL DISTENSION [None]
  - FLATULENCE [None]
